FAERS Safety Report 4769562-9 (Version None)
Quarter: 2005Q3

REPORT INFORMATION
  Report Type: 
  Country: None (occurrence: None)
  Receive Date: 20050912
  Receipt Date: 20050809
  Transmission Date: 20060218
  Serious: Yes (Other)
  Sender: FDA-Public Use
  Company Number: M03-341-081

PATIENT
  Age: 69 Year
  Sex: Male
  Weight: 102 kg

DRUGS (6)
  1. VELCADE [Suspect]
     Dosage: 0.70 MG/M2, INTRAVENOUS
     Route: 042
     Dates: start: 20030616, end: 20030101
  2. VELCADE [Suspect]
     Dosage: 0.70 MG/M2, INTRAVENOUS
     Route: 042
     Dates: start: 20030929, end: 20041202
  3. ZOMETA [Concomitant]
  4. PROCRIT [Concomitant]
  5. NEUPOGEN [Concomitant]
  6. DURAGESIC-100 [Concomitant]

REACTIONS (2)
  - INJECTION SITE IRRITATION [None]
  - NEUROPATHY [None]
